FAERS Safety Report 17335952 (Version 1)
Quarter: 2020Q1

REPORT INFORMATION
  Report Type: Spontaneous
  Country: DE (occurrence: DE)
  Receive Date: 20200128
  Receipt Date: 20200128
  Transmission Date: 20200409
  Serious: Yes (Other)
  Sender: FDA-Public Use
  Company Number: DE-ACCORD-170831

PATIENT
  Age: 90 Year
  Sex: Male

DRUGS (7)
  1. BENDAMUSTINE/BENDAMUSTINE HYDROCHLORIDE [Suspect]
     Active Substance: BENDAMUSTINE HYDROCHLORIDE
     Indication: DIFFUSE LARGE B-CELL LYMPHOMA
     Dosage: 5TH LINE THERAPY, ACCORDING TO R-BENDA REGIME, 6 CYCLES
     Route: 065
     Dates: start: 201806, end: 201810
  2. GEMCITABINE/GEMCITABINE HYDROCHLORIDE [Suspect]
     Active Substance: GEMCITABINE\GEMCITABINE HYDROCHLORIDE
     Indication: PRODUCT USED FOR UNKNOWN INDICATION
     Dosage: 6TH LINE THERAPY, ACCORDING TO R-GEMCITABIN-OXALIPLATIN REGIMEN, 1 CYCLE
     Route: 065
     Dates: start: 201901, end: 201902
  3. MABTHERA [Suspect]
     Active Substance: RITUXIMAB
     Indication: DIFFUSE LARGE B-CELL LYMPHOMA
     Dosage: 5TH LINE THERAPY, ACCORDING TO R-BENDA REGIME, 6 CYCLES
     Route: 065
     Dates: start: 201806, end: 201810
  4. IBRUTINIB [Suspect]
     Active Substance: IBRUTINIB
     Indication: DIFFUSE LARGE B-CELL LYMPHOMA
     Dosage: MOST RECENT LINE, ACCORDING TO IBRUTINIB/VENETOCLAX REGIME
     Route: 065
     Dates: start: 20190501
  5. MABTHERA [Suspect]
     Active Substance: RITUXIMAB
     Indication: PRODUCT USED FOR UNKNOWN INDICATION
     Dosage: 6TH LINE THERAPY, ACCORDING TO R-GEMCITABIN-OXALIPLATIN REGIMEN, 1 CYCLE
     Route: 065
     Dates: start: 201901, end: 201902
  6. GEMCITABINE/GEMCITABINE HYDROCHLORIDE [Suspect]
     Active Substance: GEMCITABINE\GEMCITABINE HYDROCHLORIDE
     Indication: DIFFUSE LARGE B-CELL LYMPHOMA
     Dosage: 4TH LINE THERAPY, 2 CYCLES
     Route: 065
     Dates: start: 201804, end: 201805
  7. VENETOCLAX. [Suspect]
     Active Substance: VENETOCLAX
     Indication: DIFFUSE LARGE B-CELL LYMPHOMA
     Dosage: MOST RECENT LINE, ACCORDING TO IBRUTINIB/VENETOCLAX REGIME
     Route: 065
     Dates: start: 20190501

REACTIONS (1)
  - Leukopenia [Unknown]

NARRATIVE: CASE EVENT DATE: 20191009
